FAERS Safety Report 6743548-7 (Version None)
Quarter: 2010Q2

REPORT INFORMATION
  Report Type: 
  Country: None (occurrence: None)
  Receive Date: 20100527
  Receipt Date: 20100518
  Transmission Date: 20101027
  Serious: Yes (Hospitalization)
  Sender: FDA-Public Use
  Company Number: BE-ROCHE-688869

PATIENT
  Sex: Female
  Weight: 86 kg

DRUGS (9)
  1. ROACTEMRA [Suspect]
     Indication: RHEUMATOID ARTHRITIS
     Route: 042
     Dates: start: 20090812
  2. AGGRENOX [Suspect]
     Indication: AMAUROSIS FUGAX
     Dosage: DOSE REPORTED: 25+200, FREQUENCY: DAILY
     Route: 048
     Dates: start: 20100301, end: 20100301
  3. VALTRAN [Suspect]
     Indication: INFLAMMATION
     Dosage: FREQUENCY: DAILY
     Route: 048
     Dates: start: 20100301, end: 20100301
  4. METOTREXATO [Concomitant]
     Indication: RHEUMATOID ARTHRITIS
     Dosage: DRUG: METOTREXATE
     Route: 048
     Dates: start: 20080101
  5. FOLIC ACID [Concomitant]
     Indication: VITAMIN SUPPLEMENTATION
     Route: 048
     Dates: start: 20080101
  6. AMARYL [Concomitant]
     Dosage: FREQUENCY: DAILY
  7. ZOCOR [Concomitant]
     Indication: HYPERCHOLESTEROLAEMIA
     Dosage: FREQUENCY: DAILY
     Route: 048
  8. BISOPROLOL [Concomitant]
     Indication: HYPERTENSION
     Dosage: FREQUENCY: DAILY
     Route: 048
  9. UNSPECIFIED DRUG [Concomitant]
     Indication: HYPERTENSION
     Dosage: FREQUENCY: DAILY
     Route: 048

REACTIONS (1)
  - GASTROINTESTINAL HAEMORRHAGE [None]
